FAERS Safety Report 7067273-0 (Version None)
Quarter: 2010Q4

REPORT INFORMATION
  Report Type: 
  Country: None (occurrence: None)
  Receive Date: 20101028
  Receipt Date: 20101021
  Transmission Date: 20110411
  Serious: No
  Sender: FDA-Public Use
  Company Number: US-BIOGENIDEC-2010BI036939

PATIENT
  Sex: Female

DRUGS (1)
  1. AVONEX [Suspect]
     Indication: MULTIPLE SCLEROSIS
     Route: 030
     Dates: start: 20060707

REACTIONS (6)
  - ARTHRITIS [None]
  - HOT FLUSH [None]
  - HYPERAESTHESIA [None]
  - INFLUENZA LIKE ILLNESS [None]
  - PAIN IN EXTREMITY [None]
  - SLEEP DISORDER [None]
